FAERS Safety Report 5323554-X (Version None)
Quarter: 2007Q2

REPORT INFORMATION
  Report Type: 
  Country: None (occurrence: None)
  Receive Date: 20070508
  Receipt Date: 20070425
  Transmission Date: 20071010
  Serious: Yes (Hospitalization)
  Sender: FDA-Public Use
  Company Number: 2007-157805-NL

PATIENT
  Age: 24 Year
  Sex: Female
  Weight: 61.4 kg

DRUGS (4)
  1. NUVARING [Suspect]
     Indication: CONTRACEPTION
     Dosage: VAGINAL
     Route: 067
     Dates: start: 20070416, end: 20070425
  2. KEPPRA [Concomitant]
  3. TRILEPTAL [Concomitant]
  4. BETASERON [Concomitant]

REACTIONS (11)
  - ANXIETY [None]
  - ASTHENIA [None]
  - DEPRESSION [None]
  - DISORIENTATION [None]
  - MUSCLE CONTRACTIONS INVOLUNTARY [None]
  - MUSCLE TWITCHING [None]
  - MUSCULOSKELETAL STIFFNESS [None]
  - SOMNOLENCE [None]
  - TREMOR [None]
  - VAGINAL HAEMORRHAGE [None]
  - VISION BLURRED [None]
